FAERS Safety Report 7446540-2 (Version None)
Quarter: 2011Q2

REPORT INFORMATION
  Report Type: 
  Country: None (occurrence: None)
  Receive Date: 20110429
  Receipt Date: 20110420
  Transmission Date: 20111010
  Serious: Yes (Other)
  Sender: FDA-Public Use
  Company Number: MY-JNJFOC-20110410340

PATIENT
  Sex: Female

DRUGS (4)
  1. USTEKINUMAB [Suspect]
     Indication: PSORIATIC ARTHROPATHY
     Dosage: FREQUENCY WAS INCREASED TO EVERY 8 WEEKS FROM 12 (DOSE REMAINED AT 45 MG).
     Route: 058
  2. USTEKINUMAB [Suspect]
     Indication: PSORIASIS
     Route: 058
  3. USTEKINUMAB [Suspect]
     Route: 058
  4. USTEKINUMAB [Suspect]
     Dosage: FREQUENCY WAS INCREASED TO EVERY 8 WEEKS FROM 12 (DOSE REMAINED AT 45 MG).
     Route: 058

REACTIONS (4)
  - DRUG DOSE OMISSION [None]
  - PUSTULAR PSORIASIS [None]
  - ARTHRITIS [None]
  - UVEITIS [None]
